FAERS Safety Report 8338262-0 (Version None)
Quarter: 2012Q2

REPORT INFORMATION
  Report Type: 
  Country: None (occurrence: None)
  Receive Date: 20120504
  Receipt Date: 20120426
  Transmission Date: 20120825
  Serious: Yes (Hospitalization)
  Sender: FDA-Public Use
  Company Number: US-MERCK-1204USA04340

PATIENT
  Age: 51 Year
  Sex: Female

DRUGS (7)
  1. NEURONTIN [Concomitant]
     Route: 065
  2. PROZAC [Concomitant]
     Route: 065
  3. LANTUS [Concomitant]
     Route: 065
  4. HUMALOG [Concomitant]
     Route: 065
  5. VERAPAMIL [Concomitant]
     Route: 065
  6. ZOCOR [Suspect]
     Indication: BLOOD CHOLESTEROL INCREASED
     Route: 048
  7. LASIX [Concomitant]
     Route: 065

REACTIONS (5)
  - ASTHENIA [None]
  - RENAL FAILURE [None]
  - RHABDOMYOLYSIS [None]
  - MYOCARDIAL INFARCTION [None]
  - WEIGHT INCREASED [None]
